FAERS Safety Report 25858476 (Version 1)
Quarter: 2025Q3

REPORT INFORMATION
  Report Type: Spontaneous
  Country: EU (occurrence: EU)
  Receive Date: 20250929
  Receipt Date: 20250929
  Transmission Date: 20251020
  Serious: Yes (Other)
  Sender: REGENERON
  Company Number: EU-REGENERON PHARMACEUTICALS, INC.-2025-152454

PATIENT
  Sex: Male

DRUGS (1)
  1. LIBTAYO [Suspect]
     Active Substance: CEMIPLIMAB-RWLC
     Indication: Squamous cell carcinoma of skin
     Dosage: 350 MG, EVERY 3 WEEKS PER SMPC

REACTIONS (1)
  - Inappropriate schedule of product administration [Unknown]
